FAERS Safety Report 7070072-7 (Version None)
Quarter: 2010Q4

REPORT INFORMATION
  Report Type: 
  Country: None (occurrence: None)
  Receive Date: 20101028
  Receipt Date: 20100813
  Transmission Date: 20110411
  Serious: No
  Sender: FDA-Public Use
  Company Number: US-WYE-H16928510

PATIENT
  Age: 58 Year
  Sex: Male
  Weight: 81.72 kg

DRUGS (3)
  1. ADVIL [Suspect]
     Indication: PAIN IN EXTREMITY
     Route: 048
     Dates: start: 20100811, end: 20100811
  2. ADVIL [Suspect]
     Indication: OEDEMA PERIPHERAL
  3. PREVACID [Concomitant]

REACTIONS (2)
  - COELIAC DISEASE [None]
  - CONDITION AGGRAVATED [None]
